FAERS Safety Report 23180118 (Version 1)
Quarter: 2023Q4

REPORT INFORMATION
  Report Type: Report from Study
  Country: US (occurrence: US)
  Receive Date: 20231114
  Receipt Date: 20231114
  Transmission Date: 20240109
  Serious: Yes (Other)
  Sender: FDA-Public Use
  Company Number: US-ABBVIE-5402258

PATIENT
  Age: 36 Year
  Sex: Female

DRUGS (1)
  1. HUMIRA [Suspect]
     Active Substance: ADALIMUMAB
     Indication: Rheumatoid arthritis
     Dosage: CITRATE FREE,?FORM STRENGTH: 40 MILLIGRAM
     Route: 058

REACTIONS (9)
  - Intervertebral disc protrusion [Not Recovered/Not Resolved]
  - Muscle strain [Unknown]
  - Sinusitis [Recovering/Resolving]
  - Neck pain [Unknown]
  - Migraine [Unknown]
  - Spinal deformity [Unknown]
  - Feeling abnormal [Not Recovered/Not Resolved]
  - Tendon injury [Unknown]
  - Arthralgia [Unknown]

NARRATIVE: CASE EVENT DATE: 20230901
